FAERS Safety Report 20484357 (Version 15)
Quarter: 2025Q4

REPORT INFORMATION
  Report Type: Spontaneous
  Country: JP (occurrence: JP)
  Receive Date: 20220217
  Receipt Date: 20251218
  Transmission Date: 20260117
  Serious: Yes (Life-Threatening, Hospitalization, Other)
  Sender: BRISTOL-MYERS SQUIBB COMPANY
  Company Number: JP-BRISTOL-MYERS SQUIBB COMPANY-BMS-2021-129568

PATIENT
  Age: 81 Year
  Sex: Male
  Weight: 51.2 kg

DRUGS (4)
  1. YERVOY [Suspect]
     Active Substance: IPILIMUMAB
     Indication: Metastatic renal cell carcinoma
     Route: 041
     Dates: start: 20200527, end: 20200617
  2. OPDIVO [Suspect]
     Active Substance: NIVOLUMAB
     Indication: Metastatic renal cell carcinoma
     Route: 041
     Dates: start: 20200527, end: 20200617
  3. XARELTO [Concomitant]
     Active Substance: RIVAROXABAN
     Indication: Renal cancer
     Route: 048
     Dates: end: 20200701
  4. ACETAMINOPHEN\TRAMADOL HYDROCHLORIDE [Concomitant]
     Active Substance: ACETAMINOPHEN\TRAMADOL HYDROCHLORIDE
     Indication: Renal cancer
     Route: 048
     Dates: end: 20200701

REACTIONS (15)
  - Cholangitis [Recovered/Resolved]
  - Cholecystitis [Recovered/Resolved]
  - Acute kidney injury [Recovered/Resolved]
  - Hepatic function abnormal [Recovering/Resolving]
  - Autoimmune thyroiditis [Recovering/Resolving]
  - Hyperthyroidism [Recovered/Resolved]
  - Colitis [Unknown]
  - Rash [Recovering/Resolving]
  - Pyrexia [Recovering/Resolving]
  - Diarrhoea [Recovering/Resolving]
  - Malaise [Recovering/Resolving]
  - C-reactive protein increased [Recovering/Resolving]
  - Blood pressure decreased [Unknown]
  - Decreased appetite [Unknown]
  - Immune-mediated adverse reaction [Unknown]

NARRATIVE: CASE EVENT DATE: 20200630
